FAERS Safety Report 7366320-6 (Version None)
Quarter: 2011Q1

REPORT INFORMATION
  Report Type: 
  Country: None (occurrence: None)
  Receive Date: 20110304
  Receipt Date: 20110225
  Transmission Date: 20110831
  Serious: Yes (Hospitalization)
  Sender: FDA-Public Use
  Company Number: 2010SP066374

PATIENT
  Age: 36 Year
  Sex: Female
  Weight: 60 kg

DRUGS (1)
  1. MIRCETTE [Suspect]
     Indication: ENDOMETRIOSIS
     Dosage: 1 DF; QD; PO
     Route: 048
     Dates: start: 20050725, end: 20100101

REACTIONS (2)
  - MESENTERIC ARTERY THROMBOSIS [None]
  - COLITIS ISCHAEMIC [None]
